FAERS Safety Report 15462009 (Version 4)
Quarter: 2019Q4

REPORT INFORMATION
  Report Type: Report from Study
  Country: None (occurrence: US)
  Receive Date: 20181003
  Receipt Date: 20191125
  Transmission Date: 20200122
  Serious: Yes (Other)
  Sender: FDA-Public Use
  Company Number: US-ABBVIE-18K-163-2436007-00

PATIENT
  Age: 75 Year
  Sex: Female

DRUGS (14)
  1. PLAQUENIL [Concomitant]
     Active Substance: HYDROXYCHLOROQUINE SULFATE
     Indication: PRODUCT USED FOR UNKNOWN INDICATION
  2. MOBIC [Concomitant]
     Active Substance: MELOXICAM
     Indication: PRODUCT USED FOR UNKNOWN INDICATION
  3. HUMIRA [Suspect]
     Active Substance: ADALIMUMAB
     Route: 058
  4. BIOTIN [Concomitant]
     Active Substance: BIOTIN
     Indication: PRODUCT USED FOR UNKNOWN INDICATION
  5. HUMIRA [Suspect]
     Active Substance: ADALIMUMAB
     Indication: RHEUMATOID ARTHRITIS
     Route: 058
     Dates: start: 2013, end: 20180531
  6. HUMIRA [Suspect]
     Active Substance: ADALIMUMAB
     Route: 058
     Dates: start: 201910
  7. AMITRIPTYLINE [Concomitant]
     Active Substance: AMITRIPTYLINE
     Indication: PRODUCT USED FOR UNKNOWN INDICATION
  8. PLAQUENIL [Suspect]
     Active Substance: HYDROXYCHLOROQUINE SULFATE
     Route: 065
  9. VITAMIN B [Concomitant]
     Active Substance: VITAMIN B
     Indication: PRODUCT USED FOR UNKNOWN INDICATION
  10. VITAMIN D [Concomitant]
     Active Substance: VITAMIN D NOS
     Indication: PRODUCT USED FOR UNKNOWN INDICATION
  11. HUMIRA [Suspect]
     Active Substance: ADALIMUMAB
     Route: 058
     Dates: start: 20180913, end: 2019
  12. FOLIC ACID. [Concomitant]
     Active Substance: FOLIC ACID
     Indication: PRODUCT USED FOR UNKNOWN INDICATION
  13. PLAQUENIL [Suspect]
     Active Substance: HYDROXYCHLOROQUINE SULFATE
     Indication: PRODUCT USED FOR UNKNOWN INDICATION
     Route: 065
  14. FISH OIL [Concomitant]
     Active Substance: FISH OIL
     Indication: PRODUCT USED FOR UNKNOWN INDICATION

REACTIONS (28)
  - Skin fissures [Unknown]
  - Cyst rupture [Unknown]
  - Nail bed bleeding [Unknown]
  - Poor peripheral circulation [Unknown]
  - Varicose vein [Recovered/Resolved]
  - Upper limb fracture [Recovered/Resolved]
  - Fall [Unknown]
  - Pruritus [Recovered/Resolved]
  - Pain [Unknown]
  - Nail disorder [Unknown]
  - Deep vein thrombosis [Unknown]
  - Postoperative thrombosis [Unknown]
  - Ingrowing nail [Not Recovered/Not Resolved]
  - Back pain [Unknown]
  - Carpal tunnel syndrome [Unknown]
  - Venous operation [Unknown]
  - Onychomadesis [Not Recovered/Not Resolved]
  - Musculoskeletal disorder [Unknown]
  - Skin haemorrhage [Unknown]
  - Nodule [Unknown]
  - Rheumatoid arthritis [Recovering/Resolving]
  - Skin discolouration [Recovered/Resolved]
  - Malignant melanoma in situ [Recovered/Resolved with Sequelae]
  - Post procedural complication [Unknown]
  - Pain [Recovered/Resolved]
  - Malignant melanoma [Unknown]
  - Visual impairment [Recovered/Resolved]
  - Skin discolouration [Recovered/Resolved]

NARRATIVE: CASE EVENT DATE: 2015
